FAERS Safety Report 11629893 (Version 1)
Quarter: 2015Q4

REPORT INFORMATION
  Report Type: Spontaneous
  Country: US (occurrence: US)
  Receive Date: 20151014
  Receipt Date: 20151014
  Transmission Date: 20160304
  Serious: Yes (Hospitalization, Other)
  Sender: FDA-Public Use
  Company Number: US-RB PHARMACEUTICALS LIMITED-RB-74650-2014

PATIENT
  Age: 48 Year
  Sex: Female

DRUGS (4)
  1. SUBOXONE [Suspect]
     Active Substance: BUPRENORPHINE HYDROCHLORIDE\NALOXONE HYDROCHLORIDE
     Indication: DRUG DEPENDENCE
     Dosage: 8 MG, QID
     Route: 060
     Dates: start: 20060313, end: 2012
  2. SUBOXONE [Suspect]
     Active Substance: BUPRENORPHINE HYDROCHLORIDE\NALOXONE HYDROCHLORIDE
     Dosage: 8MG, INTERMITTENTLY TOOK LESS THAN PRESCRIBED
     Route: 060
     Dates: start: 201410
  3. SUBOXONE [Suspect]
     Active Substance: BUPRENORPHINE HYDROCHLORIDE\NALOXONE HYDROCHLORIDE
     Indication: DRUG DEPENDENCE
     Dosage: 8 MG, QID
     Route: 060
     Dates: start: 2012, end: 201410
  4. NICOTINE. [Concomitant]
     Active Substance: NICOTINE
     Indication: NICOTINE DEPENDENCE
     Dosage: 1 CIGARETTE, VARIOUS DOSES
     Route: 055

REACTIONS (11)
  - Head injury [Recovered/Resolved with Sequelae]
  - Asthenia [Unknown]
  - Drug prescribing error [Unknown]
  - Fall [Recovered/Resolved]
  - Intentional underdose [Recovered/Resolved]
  - Dehydration [Not Recovered/Not Resolved]
  - Memory impairment [Not Recovered/Not Resolved]
  - Substance abuse [Unknown]
  - Decreased appetite [Unknown]
  - Vomiting [Unknown]
  - Drug withdrawal syndrome [Not Recovered/Not Resolved]

NARRATIVE: CASE EVENT DATE: 20060313
